FAERS Safety Report 26149650 (Version 1)
Quarter: 2025Q4

REPORT INFORMATION
  Report Type: Spontaneous
  Country: US (occurrence: US)
  Receive Date: 20251212
  Receipt Date: 20251212
  Transmission Date: 20260118
  Serious: Yes (Life-Threatening, Hospitalization)
  Sender: MYLAN
  Company Number: US-MYLANLABS-2025M1104098

PATIENT
  Age: 42 Year
  Sex: Male

DRUGS (1)
  1. LOPERAMIDE [Suspect]
     Active Substance: LOPERAMIDE
     Indication: Drug withdrawal syndrome
     Dosage: UNK, QD (100 TO 200 MG/DAY)

REACTIONS (10)
  - Intentional product misuse [Unknown]
  - Intentional overdose [Unknown]
  - Cardiotoxicity [Recovered/Resolved]
  - Long QT syndrome [Recovering/Resolving]
  - Ventricular fibrillation [Recovered/Resolved]
  - Ventricular tachycardia [Recovered/Resolved]
  - Loss of consciousness [Recovered/Resolved]
  - Seizure [Recovered/Resolved]
  - Neurotoxicity [Recovered/Resolved]
  - Product prescribing issue [Unknown]
